FAERS Safety Report 6912085-9 (Version None)
Quarter: 2010Q3

REPORT INFORMATION
  Report Type: 
  Country: None (occurrence: None)
  Receive Date: 20100806
  Receipt Date: 20100726
  Transmission Date: 20110219
  Serious: Yes (Hospitalization)
  Sender: FDA-Public Use
  Company Number: JP-AMGEN-QUU425891

PATIENT
  Age: 76 Year
  Sex: Female
  Weight: 39 kg

DRUGS (21)
  1. ENBREL [Suspect]
     Indication: RHEUMATOID ARTHRITIS
     Dosage: LYOPHILIZED; 50 MG / WEEK
     Route: 058
     Dates: start: 20050703, end: 20050801
  2. ENBREL [Suspect]
     Dosage: LYOPHILIZED; 12.5 MG / WEEK
     Route: 058
     Dates: start: 20060701, end: 20060901
  3. ENBREL [Suspect]
     Dosage: LYOPHILIZED; 25 MG / WEEK
     Route: 058
     Dates: start: 20060901, end: 20070301
  4. ENBREL [Suspect]
     Dosage: LYOPHILIZED; 50 MG / WEEK
     Route: 058
     Dates: start: 20070301, end: 20080801
  5. ENBREL [Suspect]
     Dosage: SOLUTION FOR INJECTION; 25 MG / WEEK
     Route: 058
     Dates: start: 20080801
  6. RHEUMATREX [Suspect]
     Indication: RHEUMATOID ARTHRITIS
     Route: 048
     Dates: start: 20090501, end: 20100507
  7. RHEUMATREX [Suspect]
     Route: 048
     Dates: start: 20100501
  8. PREDONINE [Suspect]
     Indication: RHEUMATOID ARTHRITIS
     Route: 048
     Dates: start: 20050703, end: 20050801
  9. PREDONINE [Suspect]
     Dosage: JUST BEFORE THE ADMINISTRATION OF ENBREL, 1 MG / DAY WAS ADMINISTERED
     Route: 048
     Dates: start: 20050701
  10. PREDONINE [Suspect]
     Route: 048
     Dates: start: 20050801, end: 20051101
  11. PREDONINE [Suspect]
     Route: 048
     Dates: start: 20051101, end: 20060101
  12. PREDONINE [Suspect]
     Route: 048
     Dates: start: 20060101, end: 20060501
  13. PREDONINE [Suspect]
     Route: 048
     Dates: start: 20060501, end: 20060901
  14. PREDONINE [Suspect]
     Route: 048
     Dates: start: 20060901, end: 20070101
  15. PREDONINE [Suspect]
     Route: 048
     Dates: start: 20070101, end: 20070801
  16. PREDONINE [Suspect]
     Route: 048
     Dates: start: 20070801, end: 20090101
  17. PREDONINE [Suspect]
     Route: 048
     Dates: start: 20090101, end: 20090301
  18. PREDONINE [Suspect]
     Route: 048
     Dates: start: 20090301, end: 20091001
  19. PREDONINE [Suspect]
     Route: 048
     Dates: start: 20091001, end: 20091201
  20. PREDONINE [Suspect]
     Route: 048
     Dates: start: 20091201
  21. THIAMPHENICOL [Concomitant]
     Dates: start: 20050901

REACTIONS (9)
  - ALANINE AMINOTRANSFERASE INCREASED [None]
  - ASPARTATE AMINOTRANSFERASE INCREASED [None]
  - BLOOD ALKALINE PHOSPHATASE INCREASED [None]
  - BLOOD LACTATE DEHYDROGENASE INCREASED [None]
  - CONDITION AGGRAVATED [None]
  - DISSEMINATED TUBERCULOSIS [None]
  - GAMMA-GLUTAMYLTRANSFERASE INCREASED [None]
  - KNEE ARTHROPLASTY [None]
  - RHEUMATOID ARTHRITIS [None]
